FAERS Safety Report 8419467-7 (Version None)
Quarter: 2012Q2

REPORT INFORMATION
  Report Type: 
  Country: None (occurrence: None)
  Receive Date: 20120607
  Receipt Date: 20120515
  Transmission Date: 20120825
  Serious: No
  Sender: FDA-Public Use
  Company Number: US-ASTRAZENECA-2012SE31057

PATIENT
  Age: 61 Year
  Sex: Female
  Weight: 59 kg

DRUGS (4)
  1. ANTACID PILL [Concomitant]
  2. HYDROCHLOROTHIAZIDE [Concomitant]
     Indication: HYPERTENSION
  3. SEROQUEL [Suspect]
     Indication: PANIC ATTACK
     Route: 048
  4. TOPROL-XL [Suspect]
     Route: 048

REACTIONS (6)
  - MALAISE [None]
  - DRUG INEFFECTIVE FOR UNAPPROVED INDICATION [None]
  - PANIC ATTACK [None]
  - DEPRESSION [None]
  - OFF LABEL USE [None]
  - RESTLESSNESS [None]
